FAERS Safety Report 4737996-4 (Version None)
Quarter: 2005Q3

REPORT INFORMATION
  Report Type: 
  Country: None (occurrence: None)
  Receive Date: 20050805
  Receipt Date: 20050805
  Transmission Date: 20060218
  Serious: Yes (Other)
  Sender: FDA-Public Use
  Company Number: None

PATIENT
  Age: 44 Year
  Sex: Female
  Weight: 57.1532 kg

DRUGS (1)
  1. IRON DEXTRAN [Suspect]
     Dosage: 11 ML OVER 5 MIN

REACTIONS (4)
  - COUGH [None]
  - DRY MOUTH [None]
  - DYSPNOEA [None]
  - PHARYNGEAL OEDEMA [None]
